FAERS Safety Report 15628822 (Version 8)
Quarter: 2020Q2

REPORT INFORMATION
  Report Type: Report from Study
  Country: US (occurrence: US)
  Receive Date: 20181116
  Receipt Date: 20200506
  Transmission Date: 20200713
  Serious: Yes (Death, Hospitalization)
  Sender: FDA-Public Use
  Company Number: US-ACTELION-A-NJ2018-167646

PATIENT
  Age: 85 Year
  Sex: Female
  Weight: 74.83 kg

DRUGS (22)
  1. ISOSORBIDE. [Concomitant]
     Active Substance: ISOSORBIDE
     Dosage: 30 MG, QD
  2. LEVOTHYROXINE. [Concomitant]
     Active Substance: LEVOTHYROXINE
     Dosage: 75 MCG, QD
  3. PRESERVISION [Concomitant]
     Active Substance: MINERALS\VITAMINS
  4. VITAMIN D3 [Concomitant]
     Active Substance: CHOLECALCIFEROL
  5. ATENOLOL. [Concomitant]
     Active Substance: ATENOLOL
     Dosage: 100 MG, QD
  6. OXYGEN. [Concomitant]
     Active Substance: OXYGEN
  7. ELIQUIS [Concomitant]
     Active Substance: APIXABAN
  8. PRAVASTATIN. [Concomitant]
     Active Substance: PRAVASTATIN
     Dosage: 80 MG, QPM
  9. POTASSIUM CHLORIDE. [Concomitant]
     Active Substance: POTASSIUM CHLORIDE
  10. UPTRAVI [Concomitant]
     Active Substance: SELEXIPAG
     Route: 048
  11. CLOPIDOGREL [Concomitant]
     Active Substance: CLOPIDOGREL BISULFATE
     Dosage: 75 MG, QD
  12. OPSUMIT [Suspect]
     Active Substance: MACITENTAN
     Indication: PULMONARY ARTERIAL HYPERTENSION
     Dosage: 10 MG, QD
     Route: 048
     Dates: start: 20140523
  13. SYMBICORT [Concomitant]
     Active Substance: BUDESONIDE\FORMOTEROL FUMARATE DIHYDRATE
     Dosage: 2 PUFF, BID
  14. CARTIA XT [Concomitant]
     Active Substance: DILTIAZEM HYDROCHLORIDE
  15. TRAMADOL. [Concomitant]
     Active Substance: TRAMADOL
  16. DILTIAZEM. [Concomitant]
     Active Substance: DILTIAZEM
     Dosage: 180 MG, QD
  17. METOLAZONE. [Concomitant]
     Active Substance: METOLAZONE
     Dosage: 5 MG
  18. AMLODIPINE [Concomitant]
     Active Substance: AMLODIPINE BESYLATE
  19. POTASSIUM [Concomitant]
     Active Substance: POTASSIUM
     Dosage: 10 MEQ, BID
  20. ORENITRAM [Concomitant]
     Active Substance: TREPROSTINIL
  21. LOSARTAN. [Concomitant]
     Active Substance: LOSARTAN
     Dosage: 25 MG, QD
  22. PLAVIX [Concomitant]
     Active Substance: CLOPIDOGREL BISULFATE

REACTIONS (41)
  - Pleural effusion [Unknown]
  - Blood iron decreased [Not Recovered/Not Resolved]
  - Haemoptysis [Unknown]
  - Pneumonia [Unknown]
  - Pulmonary oedema [Unknown]
  - Diastolic dysfunction [Unknown]
  - Dilatation atrial [Unknown]
  - Fatigue [Unknown]
  - Blister [Unknown]
  - Headache [Unknown]
  - Alopecia [Unknown]
  - Hypoxia [Unknown]
  - Mitral valve incompetence [Unknown]
  - Hypochromasia [Not Recovered/Not Resolved]
  - Blood count abnormal [Unknown]
  - Pain in extremity [Unknown]
  - Rhinorrhoea [Unknown]
  - Pericardial effusion [Unknown]
  - Cough [Unknown]
  - Arthralgia [Unknown]
  - Transfusion [Not Recovered/Not Resolved]
  - Rash [Unknown]
  - Oedema peripheral [Unknown]
  - Weight decreased [Unknown]
  - Dyspnoea exertional [Unknown]
  - Heart sounds abnormal [Unknown]
  - Cardiac failure congestive [Unknown]
  - Brain natriuretic peptide increased [Unknown]
  - Dyspnoea [Unknown]
  - Wheezing [Unknown]
  - Hip arthroplasty [Unknown]
  - Pain [Unknown]
  - Death [Fatal]
  - Atrial fibrillation [Unknown]
  - Peripheral swelling [Unknown]
  - Anaemia [Not Recovered/Not Resolved]
  - Haemoglobin decreased [Not Recovered/Not Resolved]
  - Transferrin saturation decreased [Not Recovered/Not Resolved]
  - Haematochezia [Unknown]
  - Cardiomegaly [Unknown]
  - Hypoaesthesia [Unknown]

NARRATIVE: CASE EVENT DATE: 201801
